FAERS Safety Report 21548950 (Version 1)
Quarter: 2022Q4

REPORT INFORMATION
  Report Type: Spontaneous
  Country: US (occurrence: US)
  Receive Date: 20221103
  Receipt Date: 20221103
  Transmission Date: 20230113
  Serious: Yes (Other)
  Sender: FDA-Public Use
  Company Number: US-BAYER-2022A147958

PATIENT
  Sex: Male

DRUGS (2)
  1. MIRALAX [Suspect]
     Active Substance: POLYETHYLENE GLYCOL 3350
     Indication: Constipation
     Dosage: UNK, QD
  2. DULCOLAX (BISACODYL) [Concomitant]
     Active Substance: BISACODYL
     Indication: Constipation
     Dosage: UNK UNK, QD

REACTIONS (3)
  - Drug dependence [Unknown]
  - Diarrhoea [Unknown]
  - Intentional product use issue [Unknown]
